FAERS Safety Report 7506187-6 (Version None)
Quarter: 2011Q2

REPORT INFORMATION
  Report Type: 
  Country: None (occurrence: None)
  Receive Date: 20110526
  Receipt Date: 20110517
  Transmission Date: 20111010
  Serious: Yes (Death, Hospitalization)
  Sender: FDA-Public Use
  Company Number: NL-SANOFI-AVENTIS-2010SA072311

PATIENT
  Age: 50 Year
  Sex: Female
  Weight: 54 kg

DRUGS (15)
  1. ERBITUX [Suspect]
     Route: 042
     Dates: start: 20091229, end: 20091229
  2. FENTANYL [Concomitant]
     Indication: PAIN
     Dates: start: 20091221, end: 20101024
  3. CARBOPLATIN [Suspect]
     Indication: HEAD AND NECK CANCER
     Route: 042
     Dates: start: 20091201, end: 20091201
  4. FLUOROURACIL [Suspect]
     Indication: HEAD AND NECK CANCER
     Route: 042
     Dates: start: 20090826, end: 20090830
  5. FENTANYL [Concomitant]
     Dates: start: 20101018, end: 20101024
  6. ACETAMINOPHEN [Concomitant]
     Indication: PAIN
     Route: 048
     Dates: start: 20100922, end: 20101024
  7. FLUOROURACIL [Suspect]
     Route: 042
     Dates: start: 20091028, end: 20091101
  8. THERAPEUTIC RADIOPHARMACEUTICALS [Suspect]
     Indication: HEAD AND NECK CANCER
     Dates: start: 20091130, end: 20100115
  9. FENTANYL [Concomitant]
     Dates: start: 20101016, end: 20101018
  10. DOCETAXEL [Suspect]
     Indication: HEAD AND NECK CANCER
     Route: 041
     Dates: start: 20090826, end: 20090826
  11. DOCETAXEL [Suspect]
     Route: 041
     Dates: start: 20091028, end: 20091028
  12. CISPLATIN [Suspect]
     Indication: HEAD AND NECK CANCER
     Route: 042
     Dates: start: 20090826, end: 20090826
  13. ERBITUX [Suspect]
     Indication: HEAD AND NECK CANCER
     Route: 042
     Dates: start: 20090826, end: 20090826
  14. CISPLATIN [Suspect]
     Route: 042
     Dates: start: 20091028, end: 20091028
  15. CARBOPLATIN [Suspect]
     Route: 042
     Dates: start: 20100112, end: 20100112

REACTIONS (1)
  - PHARYNGEAL HAEMORRHAGE [None]
